FAERS Safety Report 18228099 (Version 4)
Quarter: 2020Q4

REPORT INFORMATION
  Report Type: Report from Study
  Country: JP (occurrence: JP)
  Receive Date: 20200903
  Receipt Date: 20201230
  Transmission Date: 20210113
  Serious: Yes (Hospitalization, Other)
  Sender: FDA-Public Use
  Company Number: JP-AMGEN-JPNNI2020139349

PATIENT
  Age: 69 Year
  Sex: Female

DRUGS (12)
  1. BLINATUMOMAB [Suspect]
     Active Substance: BLINATUMOMAB
     Dosage: 19.6 MICROGRAM/SQ. METER, QD
     Route: 041
     Dates: start: 20200408, end: 20200503
  2. BLINATUMOMAB [Suspect]
     Active Substance: BLINATUMOMAB
     Dosage: 19.6 MICROGRAM/SQ. METER, QD
     Route: 041
     Dates: start: 20200609, end: 20200706
  3. DECADRON [Concomitant]
     Active Substance: DEXAMETHASONE
     Dosage: UNK
     Dates: start: 20200408, end: 20200408
  4. DECADRON [Concomitant]
     Active Substance: DEXAMETHASONE
     Dosage: UNK
     Dates: start: 20200121, end: 20200121
  5. GLIVEC [Concomitant]
     Active Substance: IMATINIB MESYLATE
     Indication: PROPHYLAXIS
     Dosage: UNK
     Dates: start: 20200623, end: 20200716
  6. SPRYCEL [Suspect]
     Active Substance: DASATINIB
     Indication: PRODUCT USED FOR UNKNOWN INDICATION
     Dosage: UNK
     Route: 065
     Dates: end: 20200421
  7. BLINATUMOMAB [Suspect]
     Active Substance: BLINATUMOMAB
     Dosage: 19.6 MICROGRAM, QD
     Route: 041
     Dates: start: 20200226, end: 20200324
  8. DECADRON [Concomitant]
     Active Substance: DEXAMETHASONE
     Dosage: UNK
     Dates: start: 20200226, end: 20200226
  9. BLINATUMOMAB [Suspect]
     Active Substance: BLINATUMOMAB
     Dosage: 19.6 MICROGRAM, QD
     Route: 041
     Dates: start: 20200121, end: 20200210
  10. DECADRON [Concomitant]
     Active Substance: DEXAMETHASONE
     Indication: PROPHYLAXIS
     Dosage: UNK
     Dates: start: 20200114, end: 20200114
  11. BLINATUMOMAB [Suspect]
     Active Substance: BLINATUMOMAB
     Indication: B PRECURSOR TYPE ACUTE LEUKAEMIA
     Dosage: 6.5 MICROGRAM, QD
     Route: 041
     Dates: start: 20200114, end: 20200120
  12. DECADRON [Concomitant]
     Active Substance: DEXAMETHASONE
     Dosage: UNK
     Dates: start: 20200609, end: 20200609

REACTIONS (6)
  - Oxygen saturation decreased [Recovering/Resolving]
  - Pneumonia aspiration [Recovering/Resolving]
  - Pleural effusion [Recovering/Resolving]
  - Pneumonia aspiration [Recovering/Resolving]
  - Decreased appetite [Recovering/Resolving]
  - Febrile neutropenia [Recovering/Resolving]

NARRATIVE: CASE EVENT DATE: 20200117
